FAERS Safety Report 13059205 (Version 1)
Quarter: 2020Q3

REPORT INFORMATION
  Report Type: Report from Study
  Country: US (occurrence: US)
  Receive Date: 20161223
  Receipt Date: 20161223
  Transmission Date: 20201104
  Serious: Yes (Hospitalization, Disabling)
  Sender: FDA-Public Use
  Company Number: US-JNJFOC-20161213088

PATIENT
  Age: 79 Year
  Sex: Female
  Weight: 44 kg

DRUGS (4)
  1. TRABECTEDIN [Suspect]
     Active Substance: TRABECTEDIN
     Indication: MALIGNANT PERITONEAL NEOPLASM
     Dosage: CYCLE 7
     Route: 042
     Dates: start: 20150423, end: 20150423
  2. PEGYLATED DOXORUBICIN HYDROCHLORIDE [Suspect]
     Active Substance: DOXORUBICIN HYDROCHLORIDE
     Route: 042
  3. PEGYLATED DOXORUBICIN HYDROCHLORIDE [Suspect]
     Active Substance: DOXORUBICIN HYDROCHLORIDE
     Indication: MALIGNANT PERITONEAL NEOPLASM
     Dosage: CYCLE 7
     Route: 042
     Dates: start: 20150423, end: 20150423
  4. TRABECTEDIN [Suspect]
     Active Substance: TRABECTEDIN
     Route: 042

REACTIONS (9)
  - Blood product transfusion dependent [Not Recovered/Not Resolved]
  - Myelodysplastic syndrome [Not Recovered/Not Resolved]
  - Heart rate increased [None]
  - Scoliosis [None]
  - Platelet count decreased [Not Recovered/Not Resolved]
  - Blood pressure systolic increased [None]
  - Skin lesion [None]
  - Red blood cell count decreased [Not Recovered/Not Resolved]
  - Second primary malignancy [None]

NARRATIVE: CASE EVENT DATE: 20150508
